FAERS Safety Report 14741102 (Version 2)
Quarter: 2018Q2

REPORT INFORMATION
  Report Type: Spontaneous
  Country: US (occurrence: US)
  Receive Date: 20180410
  Receipt Date: 20180517
  Transmission Date: 20180711
  Serious: No
  Sender: FDA-Public Use
  Company Number: US-TEVA-2018-US-872534

PATIENT
  Age: 35 Year
  Sex: Male

DRUGS (5)
  1. ACITRETIN. [Suspect]
     Active Substance: ACITRETIN
     Dosage: DOSAGE: 20-40 MG DAILY
     Route: 048
     Dates: start: 20131021
  2. ACITRETIN. [Suspect]
     Active Substance: ACITRETIN
     Dosage: DOSAGE: 20-40 MG DAILY
     Route: 048
     Dates: start: 20131021, end: 20150318
  3. FENOFIBRATE. [Concomitant]
     Active Substance: FENOFIBRATE
     Dates: start: 20131021
  4. UREA. [Concomitant]
     Active Substance: UREA
  5. ACITRETIN. [Suspect]
     Active Substance: ACITRETIN
     Indication: ICHTHYOSIS
     Dosage: DOSAGE: 20-40 MG DAILY
     Route: 048
     Dates: start: 20150318

REACTIONS (2)
  - Hyperlipidaemia [Recovering/Resolving]
  - Dyspnoea exertional [Unknown]
